FAERS Safety Report 25092734 (Version 2)
Quarter: 2025Q2

REPORT INFORMATION
  Report Type: Spontaneous
  Country: US (occurrence: US)
  Receive Date: 20250319
  Receipt Date: 20250401
  Transmission Date: 20250717
  Serious: Yes (Other)
  Sender: AUROBINDO
  Company Number: US-AUROBINDO-AUR-APL-2025-014759

PATIENT
  Age: 73 Year
  Sex: Male

DRUGS (3)
  1. MITOMYCIN [Suspect]
     Active Substance: MITOMYCIN
     Indication: Glaucoma
     Route: 065
  2. DEXAMETHASONE [Concomitant]
     Active Substance: DEXAMETHASONE
     Indication: Glaucoma
     Route: 057
  3. CEFUROXIME [Concomitant]
     Active Substance: CEFUROXIME
     Indication: Glaucoma

REACTIONS (6)
  - Retinal toxicity [Unknown]
  - Retinal oedema [Unknown]
  - Retinal vascular disorder [Unknown]
  - Retinal degeneration [Unknown]
  - Haemorrhage [Unknown]
  - Product administered at inappropriate site [Unknown]
